FAERS Safety Report 7842274-0 (Version None)
Quarter: 2011Q4

REPORT INFORMATION
  Report Type: 
  Country: None (occurrence: None)
  Receive Date: 20111025
  Receipt Date: 20111014
  Transmission Date: 20120403
  Serious: Yes (Other)
  Sender: FDA-Public Use
  Company Number: KZ-JNJFOC-20110803531

PATIENT
  Age: 15 Year
  Sex: Female

DRUGS (5)
  1. REMICADE [Suspect]
     Route: 042
     Dates: start: 20110510
  2. REMICADE [Suspect]
     Indication: COLITIS ULCERATIVE
     Route: 042
     Dates: start: 20110425
  3. PREDNISOLONE [Concomitant]
     Route: 065
  4. REMICADE [Suspect]
     Route: 042
     Dates: start: 20110608
  5. MESALAMINE [Concomitant]
     Route: 065

REACTIONS (4)
  - ARTHRALGIA [None]
  - ABDOMINAL PAIN UPPER [None]
  - COLECTOMY [None]
  - VOMITING [None]
